FAERS Safety Report 14140849 (Version 2)
Quarter: 2017Q4

REPORT INFORMATION
  Report Type: Spontaneous
  Country: US (occurrence: US)
  Receive Date: 20171030
  Receipt Date: 20171207
  Transmission Date: 20180321
  Serious: No
  Sender: FDA-Public Use
  Company Number: US-PFIZER INC-2017463083

PATIENT
  Age: 70 Year
  Sex: Male
  Weight: 81.19 kg

DRUGS (1)
  1. TOVIAZ [Suspect]
     Active Substance: FESOTERODINE FUMARATE
     Indication: POLLAKIURIA
     Dosage: 4 MG, DAILY
     Route: 048
     Dates: start: 20170912, end: 20171018

REACTIONS (2)
  - Drug ineffective [Unknown]
  - Constipation [Recovering/Resolving]
